APPROVED DRUG PRODUCT: TESTOSTERONE CYPIONATE
Active Ingredient: TESTOSTERONE CYPIONATE
Strength: 100MG/ML
Dosage Form/Route: INJECTABLE;INJECTION
Application: A201720 | Product #001
Applicant: SUN PHARMACEUTICAL INDUSTRIES LTD
Approved: Jun 3, 2013 | RLD: No | RS: No | Type: DISCN